FAERS Safety Report 5312581-4 (Version None)
Quarter: 2007Q2

REPORT INFORMATION
  Report Type: 
  Country: None (occurrence: None)
  Receive Date: 20070430
  Receipt Date: 20070213
  Transmission Date: 20071010
  Serious: No
  Sender: FDA-Public Use
  Company Number: 2007UW02904

PATIENT
  Age: 22 Year
  Sex: Female
  Weight: 48.1 kg

DRUGS (1)
  1. NEXIUM [Suspect]
     Indication: GASTROOESOPHAGEAL REFLUX DISEASE
     Route: 048
     Dates: start: 20070210

REACTIONS (6)
  - ABDOMINAL PAIN UPPER [None]
  - BACK PAIN [None]
  - CHEST PAIN [None]
  - FACIAL PAIN [None]
  - PAIN [None]
  - PAIN IN EXTREMITY [None]
